FAERS Safety Report 4744961-X (Version None)
Quarter: 2005Q3

REPORT INFORMATION
  Report Type: 
  Country: None (occurrence: None)
  Receive Date: 20050811
  Receipt Date: 20050729
  Transmission Date: 20060218
  Serious: Yes (Other)
  Sender: FDA-Public Use
  Company Number: 2005110324

PATIENT
  Sex: Female
  Weight: 60.3284 kg

DRUGS (13)
  1. CADUET [Suspect]
     Indication: HYPERTENSION
     Dosage: 10MG/20MG (1 IN 1 D)
     Dates: start: 20041201, end: 20050714
  2. NORVASC [Suspect]
     Indication: HYPERTENSION
     Dosage: 10 MG (10 MG, 1 IN 1 D)
  3. LIPITOR [Suspect]
     Indication: BLOOD CHOLESTEROL INCREASED
     Dosage: 20 MG (20 MG, 1 IN 1 D)
  4. ACETYLSALICYLIC ACID SRT [Concomitant]
  5. PLAVIX [Concomitant]
  6. LASIX [Concomitant]
  7. CLONIDINE [Concomitant]
  8. BISOPROLOL (BISOPROLOL) [Concomitant]
  9. LISINOPRIL [Concomitant]
  10. LEXAPRO [Concomitant]
  11. ZYRTEC [Concomitant]
  12. MONTELUKAST (MONTELUKAST) [Concomitant]
  13. SPIRIVA ^PFIZER^ (TIOTROPIUM BROMIDE) [Concomitant]

REACTIONS (14)
  - ALOPECIA [None]
  - AORTIC ANEURYSM [None]
  - BLOOD CHOLESTEROL INCREASED [None]
  - CHRONIC OBSTRUCTIVE PULMONARY DISEASE [None]
  - CONGESTIVE CARDIOMYOPATHY [None]
  - CORONARY ARTERY ATHEROSCLEROSIS [None]
  - CORONARY ARTERY STENOSIS [None]
  - DRY SKIN [None]
  - EJECTION FRACTION DECREASED [None]
  - EXFOLIATIVE RASH [None]
  - HYPERTENSION [None]
  - HYPOTRICHOSIS [None]
  - PERIPHERAL VASCULAR DISORDER [None]
  - RENAL ARTERY STENOSIS [None]
